FAERS Safety Report 15044116 (Version 2)
Quarter: 2020Q3

REPORT INFORMATION
  Report Type: Report from Study
  Country: US (occurrence: US)
  Receive Date: 20180621
  Receipt Date: 20190106
  Transmission Date: 20201104
  Serious: No
  Sender: FDA-Public Use
  Company Number: US-ASTRAZENECA-2016SF33388

PATIENT
  Age: 74 Year
  Sex: Female
  Weight: 82 kg

DRUGS (13)
  1. MAGNESIUM [Concomitant]
     Active Substance: MAGNESIUM
  2. ATIVAN [Concomitant]
     Active Substance: LORAZEPAM
  3. PRILOSEC [Concomitant]
     Active Substance: OMEPRAZOLE MAGNESIUM
  4. TREMELIMUMAB. [Suspect]
     Active Substance: TREMELIMUMAB
     Indication: NEOPLASM MALIGNANT
     Route: 042
     Dates: start: 20160331
  5. CICLESONIDE [Concomitant]
     Active Substance: CICLESONIDE
  6. RESTASIS [Concomitant]
     Active Substance: CYCLOSPORINE
  7. ASPIRIN. [Concomitant]
     Active Substance: ASPIRIN
  8. MEDI4736 [Suspect]
     Active Substance: DURVALUMAB
     Indication: NEOPLASM MALIGNANT
     Route: 042
     Dates: start: 20160331
  9. VESICARE [Concomitant]
     Active Substance: SOLIFENACIN SUCCINATE
  10. LIPITOR [Concomitant]
     Active Substance: ATORVASTATIN CALCIUM
  11. LOSARTAN. [Concomitant]
     Active Substance: LOSARTAN
  12. VIT. D3 [Concomitant]
  13. LEXAPRO [Concomitant]
     Active Substance: ESCITALOPRAM OXALATE

REACTIONS (1)
  - Pancreatitis [Not Recovered/Not Resolved]

NARRATIVE: CASE EVENT DATE: 20161214
